FAERS Safety Report 25362597 (Version 1)
Quarter: 2025Q2

REPORT INFORMATION
  Report Type: Spontaneous
  Country: US (occurrence: None)
  Receive Date: 20250523
  Receipt Date: 20250523
  Transmission Date: 20250717
  Serious: Yes (Hospitalization, Other)
  Sender: FDA-CTU
  Company Number: None

PATIENT
  Age: 82 Year
  Sex: Male
  Weight: 65 kg

DRUGS (4)
  1. VANCOMYCIN [Suspect]
     Active Substance: VANCOMYCIN
     Indication: Peritoneal cloudy effluent
     Route: 033
     Dates: start: 20250521, end: 20250521
  2. VANCOMYCIN [Suspect]
     Active Substance: VANCOMYCIN
     Indication: Peritoneal dialysis complication
  3. TAZICEF [Suspect]
     Active Substance: CEFTAZIDIME
     Indication: Peritoneal cloudy effluent
     Route: 033
     Dates: start: 20250521, end: 20250521
  4. TAZICEF [Suspect]
     Active Substance: CEFTAZIDIME
     Indication: Peritoneal dialysis complication

REACTIONS (9)
  - Peritoneal dialysis [None]
  - Peritonitis [None]
  - Dialysis related complication [None]
  - Defaecation urgency [None]
  - Blood pressure decreased [None]
  - Flushing [None]
  - Vomiting [None]
  - Breath sounds abnormal [None]
  - Hypersensitivity [None]

NARRATIVE: CASE EVENT DATE: 20250521
